FAERS Safety Report 10515055 (Version 1)
Quarter: 2014Q4

REPORT INFORMATION
  Report Type: Spontaneous
  Country: JP (occurrence: JP)
  Receive Date: 20141014
  Receipt Date: 20141014
  Transmission Date: 20150528
  Serious: Yes (Hospitalization)
  Sender: FDA-Public Use
  Company Number: PHHY2014JP133114

PATIENT
  Age: 58 Year
  Sex: Male

DRUGS (6)
  1. NORTRIPTYLINE [Suspect]
     Active Substance: NORTRIPTYLINE
     Indication: DEPRESSIVE SYMPTOM
     Dosage: 75 MG, PER DAY
     Route: 048
  2. MAPROTILINE [Suspect]
     Active Substance: MAPROTILINE
     Indication: DEPRESSIVE SYMPTOM
     Dosage: 75 MG, PER DAY
     Route: 048
  3. AMITRIPTYLINE [Suspect]
     Active Substance: AMITRIPTYLINE
     Dosage: 150 MG, PER DAY
     Route: 048
  4. AMITRIPTYLINE [Suspect]
     Active Substance: AMITRIPTYLINE
     Indication: DEPRESSIVE SYMPTOM
     Dosage: 75 MG, PER DAY
     Route: 048
  5. IMIPRAMINE [Suspect]
     Active Substance: IMIPRAMINE
     Indication: DEPRESSIVE SYMPTOM
     Dosage: 150 MG, PER DAY
     Route: 048
  6. NORTRIPTYLINE [Suspect]
     Active Substance: NORTRIPTYLINE
     Dosage: 150 MG, PER DAY
     Route: 048

REACTIONS (2)
  - Posture abnormal [Recovered/Resolved]
  - Pleurothotonus [Recovering/Resolving]
